FAERS Safety Report 4716015-X (Version None)
Quarter: 2005Q3

REPORT INFORMATION
  Report Type: 
  Country: None (occurrence: None)
  Receive Date: 20050718
  Receipt Date: 20050706
  Transmission Date: 20060218
  Serious: Yes (Other)
  Sender: FDA-Public Use
  Company Number: AU_040507716

PATIENT
  Age: 57 Year
  Sex: Male

DRUGS (6)
  1. TIMENTIN [Suspect]
     Indication: DRUG USE FOR UNKNOWN INDICATION
     Route: 042
     Dates: start: 20040514, end: 20040518
  2. RUBOXISTAURIN MESYLATE [Concomitant]
     Indication: NEUROPATHY PERIPHERAL
     Dosage: 32MG PER DAY
     Route: 048
     Dates: start: 20030128
  3. ATACAND [Concomitant]
     Indication: PROPHYLAXIS
     Route: 065
     Dates: start: 20030813
  4. PRAVACHOL [Concomitant]
     Indication: PROPHYLAXIS
     Route: 065
     Dates: start: 20050429, end: 20050519
  5. MIXTARD HUMAN 70/30 [Concomitant]
     Route: 065
  6. CLINDAMYCIN [Concomitant]
     Indication: INFECTED SKIN ULCER
     Dosage: 1200MG PER DAY
     Route: 065
     Dates: start: 20040511, end: 20040514

REACTIONS (6)
  - ALANINE AMINOTRANSFERASE INCREASED [None]
  - BLOOD ALKALINE PHOSPHATASE INCREASED [None]
  - DRUG HYPERSENSITIVITY [None]
  - GAMMA-GLUTAMYLTRANSFERASE INCREASED [None]
  - LIVER FUNCTION TEST ABNORMAL [None]
  - RASH [None]
